FAERS Safety Report 8577287-7 (Version None)
Quarter: 2012Q3

REPORT INFORMATION
  Report Type: 
  Country: None (occurrence: None)
  Receive Date: 20120807
  Receipt Date: 20120803
  Transmission Date: 20120928
  Serious: Yes (Other)
  Sender: FDA-Public Use
  Company Number: CA-ABBOTT-12P-028-0958517-00

PATIENT
  Sex: Female

DRUGS (5)
  1. OMEPRAZOLE [Concomitant]
     Indication: PRODUCT USED FOR UNKNOWN INDICATION
     Dosage: 20MG BID PRN
  2. DUCOSATE SODIUM [Concomitant]
     Indication: PRODUCT USED FOR UNKNOWN INDICATION
  3. HUMIRA [Suspect]
     Indication: PRODUCT USED FOR UNKNOWN INDICATION
     Route: 058
     Dates: start: 20080414
  4. IMURAN [Concomitant]
     Indication: PRODUCT USED FOR UNKNOWN INDICATION
  5. MULTI-VITAMINS [Concomitant]
     Indication: PRODUCT USED FOR UNKNOWN INDICATION

REACTIONS (71)
  - ARTHRALGIA [None]
  - AUTOIMMUNE THYROIDITIS [None]
  - LIP SWELLING [None]
  - EAR DISCOMFORT [None]
  - VOMITING [None]
  - FATIGUE [None]
  - RASH [None]
  - GASTROINTESTINAL MOTILITY DISORDER [None]
  - GAIT DISTURBANCE [None]
  - URTICARIA [None]
  - THROMBOPHLEBITIS SUPERFICIAL [None]
  - EYE INFLAMMATION [None]
  - LOCAL SWELLING [None]
  - C-REACTIVE PROTEIN DECREASED [None]
  - INTESTINAL DILATATION [None]
  - OEDEMA PERIPHERAL [None]
  - MUSCULAR WEAKNESS [None]
  - CHOKING [None]
  - MUSCULOSKELETAL STIFFNESS [None]
  - DERMATITIS [None]
  - COUGH [None]
  - FLATULENCE [None]
  - FISTULA [None]
  - EUSTACHIAN TUBE DYSFUNCTION [None]
  - FLUSHING [None]
  - PARAESTHESIA [None]
  - VISUAL FIELD DEFECT [None]
  - SEBORRHOEIC KERATOSIS [None]
  - HEADACHE [None]
  - MUSCLE SPASMS [None]
  - MUSCULOSKELETAL PAIN [None]
  - INTESTINAL OBSTRUCTION [None]
  - NIGHT SWEATS [None]
  - MEMORY IMPAIRMENT [None]
  - NAUSEA [None]
  - THYROID MASS [None]
  - GRAND MAL CONVULSION [None]
  - OROPHARYNGEAL PAIN [None]
  - PAIN IN EXTREMITY [None]
  - ARTHROPATHY [None]
  - SENSATION OF HEAVINESS [None]
  - HYPOAESTHESIA [None]
  - UTERINE LEIOMYOMA [None]
  - VISION BLURRED [None]
  - NASAL INFLAMMATION [None]
  - MENSTRUATION IRREGULAR [None]
  - CONSTIPATION [None]
  - NIPPLE SWELLING [None]
  - SLOW SPEECH [None]
  - RASH PAPULAR [None]
  - ALOPECIA [None]
  - BLOOD THYROID STIMULATING HORMONE NORMAL [None]
  - EPISTAXIS [None]
  - ACNE [None]
  - TENDONITIS [None]
  - HEMIPARESIS [None]
  - BACK PAIN [None]
  - FOLLICULITIS [None]
  - BOWEL MOVEMENT IRREGULARITY [None]
  - FEELING ABNORMAL [None]
  - MYALGIA [None]
  - DYSMENORRHOEA [None]
  - VERTIGO [None]
  - INTESTINAL STENOSIS [None]
  - SWELLING FACE [None]
  - NECK PAIN [None]
  - MALAISE [None]
  - FLANK PAIN [None]
  - DRY EYE [None]
  - TENDON PAIN [None]
  - PRESYNCOPE [None]
